FAERS Safety Report 15685650 (Version 1)
Quarter: 2018Q4

REPORT INFORMATION
  Report Type: Spontaneous
  Country: US (occurrence: US)
  Receive Date: 20181204
  Receipt Date: 20181204
  Transmission Date: 20190205
  Serious: Yes (Death, Life-Threatening, Hospitalization)
  Sender: FDA-Public Use
  Company Number: US-MYLANLABS-2018M1088091

PATIENT
  Age: 6 Decade
  Sex: Male

DRUGS (17)
  1. AMPHOTERICIN B DEOXYCHOLATE [Concomitant]
     Active Substance: AMPHOTERICIN B
     Indication: MENINGITIS CRYPTOCOCCAL
     Dosage: MAINTENANCE THERAPY
     Route: 042
  2. VORICONAZOLE. [Concomitant]
     Active Substance: VORICONAZOLE
     Indication: MENINGITIS CRYPTOCOCCAL
     Dosage: RECEIVED AS MAINTENANCE THERAPY WITH FLUCYTOSINE
     Route: 065
  3. FLUCYTOSINE. [Concomitant]
     Active Substance: FLUCYTOSINE
     Dosage: RECEIVED ADDITIONAL INDUCTION COURSE
     Route: 048
  4. FLUCONAZOLE. [Concomitant]
     Active Substance: FLUCONAZOLE
     Dosage: MAINTENANCE THERAPY
     Route: 048
  5. DEXAMETHASONE. [Concomitant]
     Active Substance: DEXAMETHASONE
     Indication: MENINGITIS CRYPTOCOCCAL
     Route: 065
  6. FLUCYTOSINE. [Concomitant]
     Active Substance: FLUCYTOSINE
     Dosage: RECEIVED AS MAINTENANCE THERAPY WITH VORICONAZOLE
     Route: 048
  7. DOLUTEGRAVIR [Suspect]
     Active Substance: DOLUTEGRAVIR
     Indication: HIV INFECTION
     Route: 065
  8. AMPHOTERICIN B. [Suspect]
     Active Substance: AMPHOTERICIN B
     Indication: MENINGITIS CRYPTOCOCCAL
     Dosage: INDUCTION THERAPY
     Route: 042
  9. AMPHOTERICIN B. [Suspect]
     Active Substance: AMPHOTERICIN B
     Dosage: RECEIVED ADDITIONAL INDUCTION COURSE
     Route: 042
  10. FLUCONAZOLE. [Concomitant]
     Active Substance: FLUCONAZOLE
     Indication: MENINGITIS CRYPTOCOCCAL
     Dosage: CONSOLIDATION THERAPY
     Route: 048
  11. FLUCYTOSINE. [Concomitant]
     Active Substance: FLUCYTOSINE
     Indication: MENINGITIS CRYPTOCOCCAL
     Dosage: INDUCTION THERAPY
     Route: 048
  12. ABACAVIR. [Suspect]
     Active Substance: ABACAVIR
     Indication: HIV INFECTION
     Route: 065
  13. LAMIVUDINE. [Suspect]
     Active Substance: LAMIVUDINE
     Indication: HIV INFECTION
     Route: 065
  14. AMPHOTERICIN B. [Suspect]
     Active Substance: AMPHOTERICIN B
     Dosage: RECEIVED THREE ADDITIONAL INDUCTION COURSES
     Route: 042
  15. FLUCONAZOLE. [Concomitant]
     Active Substance: FLUCONAZOLE
     Dosage: RECEIVED CONSOLIDATION THERAPY AT HIGHER DOSES
     Route: 048
  16. AMPHOTERICIN B. [Suspect]
     Active Substance: AMPHOTERICIN B
     Dosage: RECEIVED ADDITIONAL 12-WEEK COURSE
     Route: 042
  17. FLUCYTOSINE. [Concomitant]
     Active Substance: FLUCYTOSINE
     Dosage: RECEIVED THREE ADDITIONAL INDUCTION COURSES
     Route: 048

REACTIONS (13)
  - Central nervous system necrosis [Fatal]
  - Central nervous system inflammation [Fatal]
  - Brain herniation [Fatal]
  - Brain stem haemorrhage [Fatal]
  - Condition aggravated [Fatal]
  - Encephalitis [Fatal]
  - Hydrocephalus [Fatal]
  - Cerebral ventricle dilatation [Fatal]
  - Seizure [Unknown]
  - Immune reconstitution inflammatory syndrome [Fatal]
  - Meningitis cryptococcal [Fatal]
  - Brain oedema [Fatal]
  - Mental status changes [Not Recovered/Not Resolved]
